FAERS Safety Report 5322109-0 (Version None)
Quarter: 2007Q2

REPORT INFORMATION
  Report Type: 
  Country: None (occurrence: None)
  Receive Date: 20070222
  Receipt Date: 20060322
  Transmission Date: 20071010
  Serious: Yes (Hospitalization, Other)
  Sender: FDA-Public Use
  Company Number: HQWYE492523MAR06

PATIENT
  Age: 74 Year
  Sex: Male

DRUGS (10)
  1. EFFEXOR [Suspect]
     Indication: DEPRESSION
     Dates: end: 20060317
  2. EFFEXOR XR [Suspect]
     Indication: DEPRESSION
     Dosage: 75 MG 1X PER 1 DAY; ORAL
     Route: 048
     Dates: start: 20060318
  3. AMLODIPINE [Concomitant]
  4. ASPIRIN [Concomitant]
  5. DONEPEZIL HCL [Concomitant]
  6. HYDROMORPHONE HCL [Concomitant]
  7. METOPROLOL TARTRATE [Concomitant]
  8. PRAVACHOL [Concomitant]
  9. VITAMIN B12 [Concomitant]
  10. VITAMIN E [Concomitant]

REACTIONS (1)
  - PANCREATITIS [None]
